FAERS Safety Report 21347405 (Version 1)
Quarter: 2022Q3

REPORT INFORMATION
  Report Type: Spontaneous
  Country: None (occurrence: CN)
  Receive Date: 20220919
  Receipt Date: 20220919
  Transmission Date: 20221027
  Serious: Yes (Other)
  Sender: FDA-Public Use
  Company Number: CN-Jiangsu Hengrui Medicine Co., Ltd.-2132965

PATIENT
  Age: 25 Month
  Sex: Male
  Weight: 14.8 kg

DRUGS (1)
  1. DEXMEDETOMIDINE HYDROCHLORIDE [Suspect]
     Active Substance: DEXMEDETOMIDINE HYDROCHLORIDE
     Indication: Sedation
     Dates: start: 20220822, end: 20220822

REACTIONS (1)
  - Pallor [Recovering/Resolving]

NARRATIVE: CASE EVENT DATE: 20220822
